FAERS Safety Report 7458076-3 (Version None)
Quarter: 2011Q2

REPORT INFORMATION
  Report Type: 
  Country: None (occurrence: None)
  Receive Date: 20110503
  Receipt Date: 20110503
  Transmission Date: 20111010
  Serious: Yes (Other)
  Sender: FDA-Public Use
  Company Number: None

PATIENT
  Sex: Male
  Weight: 77.3 kg

DRUGS (6)
  1. REVLIMID [Suspect]
     Dosage: REVLIMID 25 MG DAILY X21D AND 7D OFF PO
     Route: 048
     Dates: start: 20091101, end: 20101001
  2. GABAPENTIN [Concomitant]
  3. OXYBUTYNIN [Concomitant]
  4. TERAZOSIN HCL [Concomitant]
  5. AMLODIPINE BESYLATE [Concomitant]
  6. ASPIRIN [Concomitant]

REACTIONS (2)
  - HAEMOGLOBIN DECREASED [None]
  - PLATELET COUNT DECREASED [None]
